FAERS Safety Report 21514201 (Version 1)
Quarter: 2022Q4

REPORT INFORMATION
  Report Type: Report from Study
  Country: US (occurrence: US)
  Receive Date: 20221027
  Receipt Date: 20221027
  Transmission Date: 20230112
  Serious: Yes (Other)
  Sender: FDA-Public Use
  Company Number: US-SUN PHARMACEUTICAL INDUSTRIES LTD-2022R1-360464

PATIENT
  Age: 34 Year
  Sex: Female

DRUGS (5)
  1. OXYCODONE [Suspect]
     Active Substance: OXYCODONE
     Indication: Drug use disorder
     Dosage: UNK
     Route: 065
  2. CODEINE [Suspect]
     Active Substance: CODEINE
     Indication: Drug use disorder
     Dosage: UNK
     Route: 065
  3. TYLENOL [Suspect]
     Active Substance: ACETAMINOPHEN
     Indication: Drug use disorder
     Dosage: UNK
     Route: 065
  4. VALIUM [Suspect]
     Active Substance: DIAZEPAM
     Indication: Drug use disorder
     Dosage: UNK
     Route: 065
  5. XANAX [Suspect]
     Active Substance: ALPRAZOLAM
     Indication: Drug use disorder
     Dosage: UNK
     Route: 065

REACTIONS (1)
  - Drug dependence [Unknown]
